FAERS Safety Report 9452750 (Version 1)
Quarter: 2013Q3

REPORT INFORMATION
  Report Type: Spontaneous
  Country: FR (occurrence: FR)
  Receive Date: 20130812
  Receipt Date: 20130812
  Transmission Date: 20140515
  Serious: Yes (Hospitalization)
  Sender: FDA-Public Use
  Company Number: PHHY2013FR085478

PATIENT
  Age: 54 Year
  Sex: Male

DRUGS (19)
  1. ZOMETA [Suspect]
     Dosage: 4 MG, ONCE
     Route: 042
     Dates: start: 20120729, end: 20120729
  2. PREVISCAN [Suspect]
     Indication: PROPHYLAXIS
     Dosage: UNK UKN, UNK
     Route: 048
     Dates: start: 20120729, end: 20120820
  3. NOROXINE [Suspect]
     Dosage: UNK UKN, UNK
     Route: 048
     Dates: start: 20120810, end: 20120819
  4. INIPOMP [Concomitant]
     Dosage: UNK UKN, UNK
     Route: 048
  5. INIPOMP [Concomitant]
     Dosage: UNK UKN, UNK
  6. MICARDISPLUS [Concomitant]
     Dosage: UNK UKN, UNK
     Route: 048
  7. OMEXEL [Concomitant]
     Dosage: UNK UKN, UNK
     Route: 048
  8. VELCADE [Concomitant]
     Dosage: UNK UKN, UNK
     Route: 042
     Dates: start: 20120729, end: 20120820
  9. VELCADE [Concomitant]
     Dosage: UNK UKN, UNK
  10. THALIDOMIDE [Concomitant]
     Dosage: UNK UKN, UNK
     Route: 048
     Dates: start: 20120729, end: 20120820
  11. THALIDOMIDE [Concomitant]
     Dosage: 100 MG, DAILY
     Route: 048
  12. DEXAMETHASONE [Concomitant]
     Dosage: UNK UKN, UNK
     Route: 048
     Dates: start: 20120729, end: 20120820
  13. DEXAMETHASONE [Concomitant]
     Dosage: UNK UKN, UNK
  14. ZELITREX [Concomitant]
     Dosage: UNK UKN, UNK
     Route: 048
     Dates: start: 20120729, end: 20120820
  15. ZELITREX [Concomitant]
     Dosage: UNK UKN, UNK
  16. BACTRIM FORTE [Concomitant]
     Dosage: UNK UKN, UNK
     Route: 048
     Dates: start: 20120729, end: 20120820
  17. BACTRIM FORTE [Concomitant]
     Dosage: UNK
  18. CORTICOSTEROIDS [Concomitant]
     Dosage: UNK UKN, UNK
  19. CORTICOSTEROIDS [Concomitant]
     Dosage: 40 MG, DAILY

REACTIONS (2)
  - Tubulointerstitial nephritis [Recovered/Resolved]
  - Eosinophilia [Recovered/Resolved]
